FAERS Safety Report 16214016 (Version 1)
Quarter: 2019Q2

REPORT INFORMATION
  Report Type: Spontaneous
  Country: US (occurrence: US)
  Receive Date: 20190418
  Receipt Date: 20190418
  Transmission Date: 20190711
  Serious: Yes (Hospitalization)
  Sender: FDA-Public Use
  Company Number: US-BAUSCH-BL-2019-010847

PATIENT
  Age: 39 Year
  Sex: Female

DRUGS (5)
  1. RETIN-A [Suspect]
     Active Substance: TRETINOIN
     Indication: ACNE
     Route: 065
     Dates: start: 198911, end: 199003
  2. MINOCYCLINE [Suspect]
     Active Substance: MINOCYCLINE\MINOCYCLINE HYDROCHLORIDE
     Indication: ACNE
     Route: 048
     Dates: start: 19900305, end: 199004
  3. TETRACYCLINE [Suspect]
     Active Substance: TETRACYCLINE
     Indication: ACNE
     Route: 065
     Dates: start: 198911, end: 199001
  4. VITAMIN A [Concomitant]
     Active Substance: VITAMIN A
     Indication: ACNE
  5. ACCUTANE [Suspect]
     Active Substance: ISOTRETINOIN
     Indication: ACNE
     Route: 065
     Dates: start: 198911, end: 199001

REACTIONS (3)
  - Hypersensitivity [Recovered/Resolved]
  - Acute hepatic failure [Recovered/Resolved]
  - Therapeutic product effect incomplete [Unknown]

NARRATIVE: CASE EVENT DATE: 19900418
